FAERS Safety Report 16616701 (Version 1)
Quarter: 2019Q3

REPORT INFORMATION
  Report Type: Spontaneous
  Country: US (occurrence: US)
  Receive Date: 20190723
  Receipt Date: 20190723
  Transmission Date: 20191004
  Serious: Yes (Other)
  Sender: FDA-Public Use
  Company Number: None

PATIENT
  Age: 81 Year
  Sex: Female
  Weight: 90 kg

DRUGS (11)
  1. PROMACTA [Suspect]
     Active Substance: ELTROMBOPAG OLAMINE
     Indication: IMMUNE THROMBOCYTOPENIC PURPURA
     Route: 048
     Dates: start: 20190524, end: 20190723
  2. MAGNESIUM GLUCONATE [Concomitant]
     Active Substance: MAGNESIUM GLUCONATE
  3. FLUTICASONE. [Concomitant]
     Active Substance: FLUTICASONE
  4. NPLATE [Concomitant]
     Active Substance: ROMIPLOSTIM
  5. ATORVASTATIN [Concomitant]
     Active Substance: ATORVASTATIN
  6. METOPROLOL. [Concomitant]
     Active Substance: METOPROLOL
  7. ASPIRIN. [Concomitant]
     Active Substance: ASPIRIN
  8. FISH OIL [Concomitant]
     Active Substance: FISH OIL
  9. PANTOPRAZOLE [Concomitant]
     Active Substance: PANTOPRAZOLE
  10. MULTIVITAMIN [Concomitant]
     Active Substance: VITAMINS
  11. VITAMIN C [Concomitant]
     Active Substance: ASCORBIC ACID

REACTIONS (1)
  - Adverse event [None]

NARRATIVE: CASE EVENT DATE: 20190723
